FAERS Safety Report 14890095 (Version 3)
Quarter: 2018Q3

REPORT INFORMATION
  Report Type: Spontaneous
  Country: GB (occurrence: GB)
  Receive Date: 20180514
  Receipt Date: 20180829
  Transmission Date: 20181010
  Serious: Yes (Other)
  Sender: FDA-Public Use
  Company Number: GB-BRISTOL-MYERS SQUIBB COMPANY-BMS-2018-043863

PATIENT
  Age: 60 Year
  Sex: Female

DRUGS (1)
  1. NIVOLUMAB [Suspect]
     Active Substance: NIVOLUMAB
     Indication: LUNG ADENOCARCINOMA
     Dosage: UNK
     Route: 065
     Dates: start: 201511

REACTIONS (13)
  - Hypothalamo-pituitary disorder [Unknown]
  - Dizziness [Unknown]
  - Headache [Unknown]
  - Malaise [Unknown]
  - Feeling abnormal [Unknown]
  - Influenza [Unknown]
  - Metastases to central nervous system [Unknown]
  - Hypothyroidism [Unknown]
  - Muscle spasms [Unknown]
  - Chest discomfort [Unknown]
  - Adrenal insufficiency [Unknown]
  - Pain [Unknown]
  - Fatigue [Unknown]

NARRATIVE: CASE EVENT DATE: 201701
